FAERS Safety Report 22383531 (Version 3)
Quarter: 2024Q3

REPORT INFORMATION
  Report Type: Spontaneous
  Country: US (occurrence: US)
  Receive Date: 20230530
  Receipt Date: 20240806
  Transmission Date: 20241017
  Serious: Yes (Hospitalization, Other)
  Sender: TORRENT
  Company Number: US-TORRENT-00012689

PATIENT
  Age: 60 Year
  Sex: Male

DRUGS (1)
  1. MONTELUKAST [Suspect]
     Active Substance: MONTELUKAST SODIUM
     Indication: Asthma
     Dosage: UNKNOWN
     Route: 065

REACTIONS (1)
  - Eosinophilic granulomatosis with polyangiitis [Recovered/Resolved]
